FAERS Safety Report 5014653-0 (Version None)
Quarter: 2006Q2

REPORT INFORMATION
  Report Type: 
  Country: None (occurrence: None)
  Receive Date: 20060531
  Receipt Date: 20060315
  Transmission Date: 20061013
  Serious: Yes (Life-Threatening)
  Sender: FDA-Public Use
  Company Number: US-MERCK-0603USA02523

PATIENT
  Age: 88 Year
  Sex: Female
  Weight: 61 kg

DRUGS (3)
  1. ZETIA [Suspect]
     Indication: BLOOD CHOLESTEROL INCREASED
     Route: 048
     Dates: start: 20050101
  2. ALTACE [Concomitant]
     Route: 065
  3. LOPRESSOR [Concomitant]
     Route: 065

REACTIONS (2)
  - ALOPECIA [None]
  - HYPOTRICHOSIS [None]
